FAERS Safety Report 21758331 (Version 1)
Quarter: 2022Q4

REPORT INFORMATION
  Report Type: Spontaneous
  Country: CA (occurrence: CA)
  Receive Date: 20221221
  Receipt Date: 20221221
  Transmission Date: 20230113
  Serious: Yes (Hospitalization, Other)
  Sender: FDA-Public Use
  Company Number: CA-SA-2020SA314357

PATIENT
  Age: 77 Year
  Sex: Female
  Weight: 54.422 kg

DRUGS (11)
  1. LOVENOX [Suspect]
     Active Substance: ENOXAPARIN SODIUM
     Indication: Thrombosis prophylaxis
     Dosage: 80 MG, QD
     Route: 058
     Dates: start: 20200314, end: 20200616
  2. LOVENOX [Suspect]
     Active Substance: ENOXAPARIN SODIUM
     Indication: Deep vein thrombosis
  3. LEVOTHYROXINE [Concomitant]
     Active Substance: LEVOTHYROXINE
     Route: 065
  4. LEVOTHYROXINE [Concomitant]
     Active Substance: LEVOTHYROXINE
     Dosage: 50 UG, QD
  5. METRONIDAZOLE [Concomitant]
     Active Substance: METRONIDAZOLE
     Route: 065
  6. METRONIDAZOLE [Concomitant]
     Active Substance: METRONIDAZOLE
     Dosage: 500 MG, TID
  7. VANCOMYCIN [Concomitant]
     Active Substance: VANCOMYCIN
     Route: 065
  8. EDOXABAN [Concomitant]
     Active Substance: EDOXABAN
     Dosage: 60 MG, QD
  9. DALTEPARIN [Concomitant]
     Active Substance: DALTEPARIN
  10. PANTOPRAZOLE [Concomitant]
     Active Substance: PANTOPRAZOLE
     Dosage: UNK, BID
  11. OCTREOTIDE [Concomitant]
     Active Substance: OCTREOTIDE

REACTIONS (9)
  - Febrile neutropenia [Recovering/Resolving]
  - Clostridium difficile colitis [Recovering/Resolving]
  - Pancreatic carcinoma metastatic [Recovering/Resolving]
  - Intestinal ischaemia [Recovering/Resolving]
  - Cholelithiasis [Recovering/Resolving]
  - Small intestinal obstruction [Recovering/Resolving]
  - Haemoglobin decreased [Unknown]
  - Upper gastrointestinal haemorrhage [Recovering/Resolving]
  - Gastrointestinal haemorrhage [Unknown]

NARRATIVE: CASE EVENT DATE: 20200316
